FAERS Safety Report 9920903 (Version 1)
Quarter: 2014Q1

REPORT INFORMATION
  Report Type: Report from Study
  Country: DE (occurrence: DE)
  Receive Date: 20140225
  Receipt Date: 20140225
  Transmission Date: 20141002
  Serious: Yes (Hospitalization)
  Sender: FDA-Public Use
  Company Number: DE-ROCHE-1352675

PATIENT
  Age: 74 Year
  Sex: Female

DRUGS (3)
  1. TOCILIZUMAB [Suspect]
     Indication: RHEUMATOID ARTHRITIS
     Route: 065
     Dates: start: 200908
  2. TOCILIZUMAB [Suspect]
     Route: 065
  3. TOCILIZUMAB [Suspect]
     Route: 065

REACTIONS (1)
  - Rotator cuff syndrome [Recovered/Resolved]
